FAERS Safety Report 20108298 (Version 1)
Quarter: 2021Q4

REPORT INFORMATION
  Report Type: Spontaneous
  Country: JP (occurrence: None)
  Receive Date: 20211124
  Receipt Date: 20211124
  Transmission Date: 20220304
  Serious: Yes (Other)
  Sender: FDA-Public Use
  Company Number: 2021A816912

PATIENT
  Age: 82 Year
  Sex: Female

DRUGS (5)
  1. TAGRISSO [Suspect]
     Active Substance: OSIMERTINIB
     Indication: Non-small cell lung cancer
     Route: 048
  2. EPINASTINE [Concomitant]
     Active Substance: EPINASTINE
     Dosage: DOSE UNKNOWN
     Route: 065
  3. DEXTROMETHORPHAN HYDROBROMIDE [Concomitant]
     Active Substance: DEXTROMETHORPHAN HYDROBROMIDE
     Dosage: DOSE UNKNOWN
     Route: 065
  4. AMLODIPINE [Concomitant]
     Active Substance: AMLODIPINE BESYLATE
     Dosage: DOSE UNKNOWN
     Route: 065
  5. URAPIDIL [Concomitant]
     Active Substance: URAPIDIL
     Dosage: DOSE UNKNOWN
     Route: 065

REACTIONS (3)
  - Blood creatine phosphokinase MB increased [Not Recovered/Not Resolved]
  - Troponin increased [Not Recovered/Not Resolved]
  - Off label use [Unknown]
